FAERS Safety Report 8592474-X (Version None)
Quarter: 2012Q3

REPORT INFORMATION
  Report Type: 
  Country: None (occurrence: None)
  Receive Date: 20120814
  Receipt Date: 20120802
  Transmission Date: 20120928
  Serious: Yes (Hospitalization, Disabling, Other)
  Sender: FDA-Public Use
  Company Number: US-009507513-1204USA04273

PATIENT

DRUGS (1)
  1. FOSAMAX [Suspect]
     Indication: OSTEOPOROSIS
     Dosage: 70 MG, UNK
     Route: 048
     Dates: start: 20010801, end: 20090101

REACTIONS (7)
  - FEMUR FRACTURE [None]
  - GINGIVAL PAIN [None]
  - RHEUMATOID ARTHRITIS [None]
  - TOOTH DISORDER [None]
  - ASTHENIA [None]
  - DIABETES MELLITUS [None]
  - BREAST CANCER [None]
